FAERS Safety Report 4358856-7 (Version None)
Quarter: 2004Q2

REPORT INFORMATION
  Report Type: 
  Country: None (occurrence: None)
  Receive Date: 20040512
  Receipt Date: 20040428
  Transmission Date: 20050107
  Serious: Yes (Life-Threatening, Other)
  Sender: FDA-Public Use
  Company Number: 2004024365

PATIENT
  Age: 81 Year
  Sex: Male

DRUGS (6)
  1. UNASYN [Suspect]
     Indication: INFECTION PROPHYLAXIS
     Dosage: 3 GRAM (1.5 GRAM, 2 IN 1 D), INTRAVENOUS
     Route: 042
     Dates: start: 20040327, end: 20040404
  2. FAMOTIDINE [Suspect]
     Indication: PROPHYLAXIS AGAINST GASTROINTESTINAL ULCER
     Dosage: 40 MG (1 IN 1D), INTRAVENOUS
     Route: 042
     Dates: start: 20040327, end: 20040404
  3. SULPERAZON (CEFOPERAZONE SODIUM, SULBACTAM SODIUM) [Concomitant]
  4. NEOLAMIN MULTI V (VITAMINS NOS) [Concomitant]
  5. MINERAL TAB [Concomitant]
  6. FENTANYL CITRATE [Concomitant]

REACTIONS (8)
  - ANTI-PLATELET ANTIBODY POSITIVE [None]
  - CHOLECYSTITIS [None]
  - HAEMATOCRIT DECREASED [None]
  - HAEMOGLOBIN DECREASED [None]
  - PLATELET COUNT DECREASED [None]
  - POST PROCEDURAL COMPLICATION [None]
  - RED BLOOD CELL COUNT DECREASED [None]
  - WHITE BLOOD CELL COUNT DECREASED [None]
